FAERS Safety Report 6636720-8 (Version None)
Quarter: 2010Q1

REPORT INFORMATION
  Report Type: 
  Country: None (occurrence: None)
  Receive Date: 20100316
  Receipt Date: 20100308
  Transmission Date: 20100710
  Serious: Yes (Hospitalization)
  Sender: FDA-Public Use
  Company Number: B0638186A

PATIENT
  Sex: Male

DRUGS (14)
  1. AUGMENTIN '125' [Suspect]
     Indication: ANTIBIOTIC PROPHYLAXIS
     Route: 042
     Dates: start: 20100211, end: 20100212
  2. IOBITRIDOL [Suspect]
     Dosage: 350MG TWICE PER DAY
     Route: 042
     Dates: start: 20100211, end: 20100211
  3. CIPROFLOXACIN HCL [Suspect]
     Indication: ANTIBIOTIC PROPHYLAXIS
     Dosage: 200MG PER DAY
     Route: 042
     Dates: start: 20100211, end: 20100212
  4. UROKINASE [Suspect]
     Route: 042
     Dates: start: 20100211, end: 20100211
  5. CLONAZEPAM [Concomitant]
     Dosage: 5DROP THREE TIMES PER DAY
     Route: 065
  6. LASILIX [Concomitant]
     Dosage: 40MG PER DAY
     Route: 065
  7. COVERSYL [Concomitant]
     Dosage: 2.5MG PER DAY
     Route: 065
  8. SPECIAFOLDINE [Concomitant]
     Dosage: 2TAB PER DAY
     Route: 065
  9. IMOVANE [Concomitant]
     Dosage: 1TAB PER DAY
     Route: 065
  10. ASPEGIC 1000 [Concomitant]
     Dosage: 100MG PER DAY
     Route: 065
  11. DIFFU K [Concomitant]
     Dosage: 2TAB PER DAY
     Route: 065
  12. NEURONTIN [Concomitant]
     Dosage: 300MG PER DAY
     Route: 065
  13. CONTRAMAL [Concomitant]
     Dosage: 100MG PER DAY
     Route: 065
  14. CORTANCYL [Concomitant]
     Dosage: 35MG PER DAY
     Route: 065

REACTIONS (5)
  - DERMATITIS EXFOLIATIVE [None]
  - GENERAL PHYSICAL HEALTH DETERIORATION [None]
  - HYPOTENSION [None]
  - PYREXIA [None]
  - RASH PUSTULAR [None]
